FAERS Safety Report 21069260 (Version 1)
Quarter: 2022Q3

REPORT INFORMATION
  Report Type: Spontaneous
  Country: US (occurrence: US)
  Receive Date: 20220712
  Receipt Date: 20220712
  Transmission Date: 20221026
  Serious: No
  Sender: FDA-Public Use
  Company Number: US-AMRYT PHARMACEUTICALS DAC-AEGR005912

PATIENT

DRUGS (1)
  1. MYCAPSSA [Suspect]
     Active Substance: OCTREOTIDE
     Indication: Product used for unknown indication

REACTIONS (1)
  - Adverse drug reaction [Unknown]
